FAERS Safety Report 4735322-8 (Version None)
Quarter: 2005Q3

REPORT INFORMATION
  Report Type: 
  Country: None (occurrence: None)
  Receive Date: 20050805
  Receipt Date: 20050727
  Transmission Date: 20060218
  Serious: Yes (Life-Threatening, Other)
  Sender: FDA-Public Use
  Company Number: IT-ABBOTT-05P-083-0306889-00

PATIENT
  Sex: Male

DRUGS (7)
  1. SEVORANE LIQUID FOR INHALATION [Suspect]
     Indication: MAINTENANCE OF ANAESTHESIA
     Dosage: NOT REPORTED
     Dates: start: 20050615, end: 20050616
  2. GELPLEX 50 MG/ML [Suspect]
     Indication: HYPOTENSION
     Dosage: NOT REPORTED
     Dates: start: 20050615, end: 20050616
  3. PROPOFOL [Concomitant]
     Indication: DRUG USE FOR UNKNOWN INDICATION
     Dosage: NOT REPORTED
  4. FENTANYL CITRATE [Concomitant]
     Indication: DRUG USE FOR UNKNOWN INDICATION
     Dosage: NOT REPORTED
  5. ATROPINE SULFATE [Concomitant]
     Indication: DRUG USE FOR UNKNOWN INDICATION
     Dosage: NOT REPORTED
  6. CISATRACURIUM BESILATE [Concomitant]
     Indication: DRUG USE FOR UNKNOWN INDICATION
     Dosage: NOT REPORTED
  7. RINGER LATTATO [Concomitant]
     Indication: DRUG USE FOR UNKNOWN INDICATION
     Dosage: NOT REPORTED

REACTIONS (3)
  - BRADYCARDIA [None]
  - BRONCHOSTENOSIS [None]
  - HYPOTENSION [None]
